FAERS Safety Report 11343963 (Version 1)
Quarter: 2015Q3

REPORT INFORMATION
  Report Type: Spontaneous
  Country: US (occurrence: None)
  Receive Date: 20150804
  Receipt Date: 20150804
  Transmission Date: 20151125
  Serious: No
  Sender: FDA-Public Use
  Company Number: None

PATIENT
  Age: 51 Year
  Sex: Male

DRUGS (1)
  1. BEXAROTENE. [Suspect]
     Active Substance: BEXAROTENE
     Indication: SKIN CANCER
     Route: 048
     Dates: start: 20150524

REACTIONS (3)
  - Rash [None]
  - Product substitution issue [None]
  - Generalised erythema [None]

NARRATIVE: CASE EVENT DATE: 20150726
